FAERS Safety Report 19895002 (Version 1)
Quarter: 2021Q3

REPORT INFORMATION
  Report Type: Report from Study
  Country: US (occurrence: US)
  Receive Date: 20210928
  Receipt Date: 20210928
  Transmission Date: 20211014
  Serious: Yes (Death, Other)
  Sender: FDA-Public Use
  Company Number: US-BRISTOL-MYERS SQUIBB COMPANY-BMS-2021-097098

PATIENT
  Age: 80 Year
  Sex: Male

DRUGS (3)
  1. IPILIMUMAB [Suspect]
     Active Substance: IPILIMUMAB
     Indication: PANCREATIC CARCINOMA
     Dosage: 40 MILLIGRAM, Q2WK
     Route: 042
  2. SPRYCEL [Suspect]
     Active Substance: DASATINIB
     Indication: PANCREATIC CARCINOMA
     Dosage: 70 MILLIGRAM, QD
     Route: 048
  3. NIVOLUMAB [Suspect]
     Active Substance: NIVOLUMAB
     Indication: PANCREATIC CARCINOMA
     Dosage: 480 MILLIGRAM, Q4WK
     Route: 042

REACTIONS (3)
  - Intentional product use issue [Unknown]
  - Death [Fatal]
  - Treatment noncompliance [Unknown]
